FAERS Safety Report 7410206-5 (Version None)
Quarter: 2011Q2

REPORT INFORMATION
  Report Type: 
  Country: None (occurrence: None)
  Receive Date: 20110412
  Receipt Date: 20110407
  Transmission Date: 20111010
  Serious: Yes (Other)
  Sender: FDA-Public Use
  Company Number: US-PFIZER INC-2011077467

PATIENT
  Age: 48 Year
  Sex: Male
  Weight: 68.027 kg

DRUGS (1)
  1. PREPARATION H [Suspect]
     Indication: PRURITUS
     Dosage: UNK
     Dates: start: 20110401, end: 20110403

REACTIONS (1)
  - HAEMATOCHEZIA [None]
